FAERS Safety Report 22245471 (Version 10)
Quarter: 2023Q4

REPORT INFORMATION
  Report Type: Report from Study
  Country: EC (occurrence: EC)
  Receive Date: 20230424
  Receipt Date: 20231106
  Transmission Date: 20240110
  Serious: Yes (Hospitalization, Other)
  Sender: FDA-Public Use
  Company Number: EC-002147023-NVSC2022EC171608

PATIENT
  Age: 72 Year
  Sex: Female

DRUGS (2)
  1. KISQALI [Suspect]
     Active Substance: RIBOCICLIB
     Indication: Breast cancer
     Dosage: 600 MG, QD (VIA MOUTH)
     Route: 048
     Dates: start: 20210924, end: 20231014
  2. KISQALI [Suspect]
     Active Substance: RIBOCICLIB
     Dosage: 600 MG, QD
     Route: 048
     Dates: start: 20230501

REACTIONS (20)
  - COVID-19 [Recovered/Resolved]
  - Pyrexia [Recovered/Resolved]
  - Bone pain [Recovered/Resolved]
  - Cough [Recovered/Resolved]
  - Diplegia [Recovering/Resolving]
  - Neoplasm malignant [Unknown]
  - Productive cough [Not Recovered/Not Resolved]
  - Decubitus ulcer [Recovering/Resolving]
  - Decreased immune responsiveness [Recovering/Resolving]
  - Hypersensitivity [Unknown]
  - Dysphonia [Not Recovered/Not Resolved]
  - Dysstasia [Not Recovered/Not Resolved]
  - Pain in extremity [Not Recovered/Not Resolved]
  - Influenza [Recovering/Resolving]
  - Cough [Recovering/Resolving]
  - Pruritus [Recovering/Resolving]
  - Anaemia [Recovering/Resolving]
  - Back pain [Not Recovered/Not Resolved]
  - Fatigue [Not Recovered/Not Resolved]
  - Nausea [Recovering/Resolving]

NARRATIVE: CASE EVENT DATE: 20220716
